FAERS Safety Report 5830932-9 (Version None)
Quarter: 2008Q3

REPORT INFORMATION
  Report Type: 
  Country: None (occurrence: None)
  Receive Date: 20080801
  Receipt Date: 20080212
  Transmission Date: 20090109
  Serious: Yes (Hospitalization)
  Sender: FDA-Public Use
  Company Number: US-BRISTOL-MYERS SQUIBB COMPANY-14073555

PATIENT
  Age: 72 Year
  Sex: Male
  Weight: 91 kg

DRUGS (6)
  1. WARFARIN SODIUM [Suspect]
     Indication: SURGERY
     Dates: start: 20071227
  2. INNOHEP [Suspect]
     Indication: SURGERY
     Dates: start: 20071227
  3. ZOLOFT [Concomitant]
  4. AVAPRO [Concomitant]
  5. NEXIUM [Concomitant]
  6. SYNTHROID [Concomitant]

REACTIONS (3)
  - BLISTER [None]
  - NAUSEA [None]
  - RASH [None]
